FAERS Safety Report 5707603-2 (Version None)
Quarter: 2008Q1

REPORT INFORMATION
  Report Type: 
  Country: None (occurrence: None)
  Receive Date: 20080129
  Receipt Date: 20070509
  Transmission Date: 20080703
  Serious: Yes (Other)
  Sender: FDA-Public Use
  Company Number: 2007BH004244

PATIENT
  Sex: Female

DRUGS (1)
  1. FIBRIN SEALANT NOS [Suspect]
     Indication: SURGERY
     Dosage: TOP
     Route: 061
     Dates: start: 20070308, end: 20070308

REACTIONS (1)
  - ANAPHYLACTIC REACTION [None]
